FAERS Safety Report 4630357-8 (Version None)
Quarter: 2005Q2

REPORT INFORMATION
  Report Type: 
  Country: None (occurrence: None)
  Receive Date: 20050406
  Receipt Date: 20050325
  Transmission Date: 20051028
  Serious: Yes (Hospitalization, Other)
  Sender: FDA-Public Use
  Company Number: 2005049912

PATIENT
  Age: 32 Year
  Sex: Female
  Weight: 172.3669 kg

DRUGS (2)
  1. NEURONTIN [Suspect]
     Indication: MANIA
     Dosage: ORAL
     Route: 048
     Dates: end: 20050201
  2. ESCITALOPRAM OXALATE [Concomitant]

REACTIONS (7)
  - DRUG INEFFECTIVE [None]
  - HALLUCINATION, AUDITORY [None]
  - HEAD INJURY [None]
  - LOWER LIMB FRACTURE [None]
  - NERVOUS SYSTEM DISORDER [None]
  - SKIN LACERATION [None]
  - SUICIDAL IDEATION [None]
